FAERS Safety Report 16287319 (Version 4)
Quarter: 2019Q4

REPORT INFORMATION
  Report Type: Spontaneous
  Country: US (occurrence: US)
  Receive Date: 20190508
  Receipt Date: 20191008
  Transmission Date: 20200122
  Serious: Yes (Hospitalization, Other)
  Sender: FDA-Public Use
  Company Number: US-ACTELION-A-NJ2019-190031

PATIENT
  Age: 78 Year
  Sex: Female
  Weight: 98.41 kg

DRUGS (1)
  1. OPSUMIT [Suspect]
     Active Substance: MACITENTAN
     Indication: PULMONARY ARTERIAL HYPERTENSION
     Dosage: 10 MG, QD
     Route: 048

REACTIONS (3)
  - Cerebrovascular accident [Unknown]
  - Clostridium difficile colitis [Unknown]
  - Fall [Unknown]

NARRATIVE: CASE EVENT DATE: 201903
